FAERS Safety Report 10592986 (Version 1)
Quarter: 2014Q4

REPORT INFORMATION
  Report Type: Spontaneous
  Country: US (occurrence: None)
  Receive Date: 20141118
  Receipt Date: 20141118
  Transmission Date: 20150529
  Serious: Yes (Life-Threatening, Hospitalization)
  Sender: FDA-Public Use
  Company Number: None

PATIENT
  Age: 67 Year
  Sex: Male
  Weight: 64.5 kg

DRUGS (2)
  1. ENOXAPARIN [Suspect]
     Active Substance: ENOXAPARIN
     Indication: HEPARIN-INDUCED THROMBOCYTOPENIA
     Route: 058
     Dates: start: 20140809, end: 20140819
  2. WARFARIN [Suspect]
     Active Substance: WARFARIN
     Indication: HAEMORRHAGE
     Route: 048
     Dates: start: 20140809

REACTIONS (4)
  - Rectal haemorrhage [None]
  - Haemorrhage [None]
  - International normalised ratio increased [None]
  - Heparin-induced thrombocytopenia [None]

NARRATIVE: CASE EVENT DATE: 20140819
